FAERS Safety Report 8457809-7 (Version None)
Quarter: 2012Q2

REPORT INFORMATION
  Report Type: 
  Country: None (occurrence: None)
  Receive Date: 20120323
  Receipt Date: 20111111
  Transmission Date: 20120825
  Serious: Yes (Disabling)
  Sender: FDA-Public Use
  Company Number: 163-21880-11081564

PATIENT
  Age: 62 Year
  Sex: Female
  Weight: 82.5547 kg

DRUGS (12)
  1. OXYCONTIN [Concomitant]
  2. LEVOTHYROXINE SODIUM [Concomitant]
  3. DECADRON [Concomitant]
  4. ZOMETA [Concomitant]
  5. DIGOXIN [Concomitant]
  6. WARFARIN SODIUM [Concomitant]
  7. REVLIMID [Suspect]
     Indication: MULTIPLE MYELOMA
     Dosage: 10 MG, DAILY X 21 DAYS, PO; 10 MG, DAILY X 21 DAYS, PO
     Route: 048
     Dates: start: 20110822
  8. REVLIMID [Suspect]
     Indication: MULTIPLE MYELOMA
     Dosage: 10 MG, DAILY X 21 DAYS, PO; 10 MG, DAILY X 21 DAYS, PO
     Route: 048
     Dates: start: 20090212
  9. ANTIBIOTICS (ANTIBIOTICS) [Concomitant]
  10. ALDACTONE [Concomitant]
  11. OXYCODONE HCL [Concomitant]
  12. LASIX [Concomitant]

REACTIONS (1)
  - SKIN ULCER [None]
